FAERS Safety Report 25245285 (Version 2)
Quarter: 2025Q2

REPORT INFORMATION
  Report Type: Spontaneous
  Country: BE (occurrence: BE)
  Receive Date: 20250428
  Receipt Date: 20250507
  Transmission Date: 20250717
  Serious: Yes (Other)
  Sender: BAYER HEALTHCARE PHARMACEUTICALS INC.
  Company Number: BE-BAYER-2025A056236

PATIENT
  Age: 70 Year
  Sex: Female
  Weight: 66 kg

DRUGS (6)
  1. AVELOX [Suspect]
     Active Substance: MOXIFLOXACIN HYDROCHLORIDE
     Indication: Endophthalmitis
     Dosage: 400 MG, QD
     Route: 048
  2. IBUPROFEN [Concomitant]
     Active Substance: IBUPROFEN
  3. VANCOMYCIN [Suspect]
     Active Substance: VANCOMYCIN
  4. TOBRAMYCIN AND DEXAMETHASONE [Concomitant]
     Active Substance: DEXAMETHASONE\TOBRAMYCIN
  5. DEXAMETHASONE [Concomitant]
     Active Substance: DEXAMETHASONE
  6. DEXAMETHASONE\NEOMYCIN SULFATE\POLYMYXIN B SULFATE [Concomitant]
     Active Substance: DEXAMETHASONE\NEOMYCIN SULFATE\POLYMYXIN B SULFATE

REACTIONS (3)
  - Iris transillumination defect [Not Recovered/Not Resolved]
  - Product use in unapproved indication [None]
  - Product prescribing issue [None]
